APPROVED DRUG PRODUCT: ADLARITY
Active Ingredient: DONEPEZIL HYDROCHLORIDE
Strength: 5MG/DAY
Dosage Form/Route: SYSTEM;TRANSDERMAL
Application: N212304 | Product #001
Applicant: CORIUM LLC
Approved: Mar 11, 2022 | RLD: Yes | RS: No | Type: DISCN

PATENTS:
Patent 12161767 | Expires: Dec 30, 2036
Patent 12168075 | Expires: Dec 30, 2036
Patent 11648214 | Expires: Sep 23, 2037
Patent 10966936 | Expires: Aug 11, 2038
Patent 11103463 | Expires: Jul 26, 2037
Patent 10835499 | Expires: May 20, 2038
Patent 10016372 | Expires: Jul 26, 2037
Patent 11679086 | Expires: May 26, 2037
Patent 10300025 | Expires: Jul 26, 2037
Patent 10307379 | Expires: Jul 26, 2037
Patent 9993466 | Expires: Jul 26, 2037